FAERS Safety Report 6505563-8 (Version None)
Quarter: 2009Q4

REPORT INFORMATION
  Report Type: 
  Country: None (occurrence: None)
  Receive Date: 20091217
  Receipt Date: 20091217
  Transmission Date: 20100525
  Serious: Yes (Other)
  Sender: FDA-Public Use
  Company Number: None

PATIENT
  Sex: Female
  Weight: 66.6788 kg

DRUGS (2)
  1. FENTANYL TRANSDERMAL SYSTEM 100MG , 50 MCG, 25 MCG WATSON LABS [Suspect]
     Indication: ARTHRALGIA
     Dosage: NOW 25MCG PATCH EVERY 3 DAYS TRANSDERMAL
     Route: 062
     Dates: start: 20091101
  2. FENTANYL TRANSDERMAL SYSTEM 100MG , 50 MCG, 25 MCG WATSON LABS [Suspect]
     Indication: BACK PAIN
     Dosage: NOW 25MCG PATCH EVERY 3 DAYS TRANSDERMAL
     Route: 062
     Dates: start: 20091101

REACTIONS (7)
  - DEPRESSION [None]
  - DIARRHOEA [None]
  - DRUG WITHDRAWAL SYNDROME [None]
  - FEELING OF BODY TEMPERATURE CHANGE [None]
  - MOOD SWINGS [None]
  - NAUSEA [None]
  - TREMOR [None]
